FAERS Safety Report 4776926-6 (Version None)
Quarter: 2005Q3

REPORT INFORMATION
  Report Type: 
  Country: None (occurrence: None)
  Receive Date: 20050923
  Receipt Date: 20050824
  Transmission Date: 20060218
  Serious: Yes (Hospitalization)
  Sender: FDA-Public Use
  Company Number: DE-SANOFI-SYNTHELABO-A04200500763

PATIENT
  Sex: Male
  Weight: 93 kg

DRUGS (3)
  1. ELOXATIN [Suspect]
     Indication: RECTOSIGMOID CANCER
     Route: 041
     Dates: start: 20050706, end: 20050706
  2. FLUOROURACIL [Concomitant]
     Indication: RECTOSIGMOID CANCER
     Route: 041
     Dates: start: 20050706, end: 20050707
  3. FOLINSAEURE [Concomitant]
     Indication: RECTOSIGMOID CANCER
     Route: 041
     Dates: start: 20050706, end: 20050701

REACTIONS (1)
  - CONVULSION [None]
